FAERS Safety Report 17698077 (Version 2)
Quarter: 2021Q2

REPORT INFORMATION
  Report Type: Spontaneous
  Country: US (occurrence: US)
  Receive Date: 20200423
  Receipt Date: 20210416
  Transmission Date: 20210716
  Serious: Yes (Other)
  Sender: FDA-Public Use
  Company Number: US-ASTRAZENECA-2020SE51880

PATIENT
  Age: 24091 Day
  Sex: Male
  Weight: 97.5 kg

DRUGS (58)
  1. PRILOSEC [Suspect]
     Active Substance: OMEPRAZOLE MAGNESIUM
     Indication: GASTROOESOPHAGEAL REFLUX DISEASE
     Route: 048
     Dates: start: 1990, end: 2017
  2. METOPROLOL. [Concomitant]
     Active Substance: METOPROLOL
  3. FAMOTIDINE. [Concomitant]
     Active Substance: FAMOTIDINE
     Route: 048
     Dates: start: 20170826
  4. RANITIDINE. [Concomitant]
     Active Substance: RANITIDINE
     Route: 048
     Dates: start: 20170826
  5. CILOSTAZOL. [Concomitant]
     Active Substance: CILOSTAZOL
  6. LORATADINE. [Concomitant]
     Active Substance: LORATADINE
  7. MONTELUKAST [Concomitant]
     Active Substance: MONTELUKAST SODIUM
  8. PANTOPRAZOLE [Concomitant]
     Active Substance: PANTOPRAZOLE
     Route: 048
     Dates: start: 20170826
  9. OMEGA 3 [Concomitant]
     Active Substance: OMEGA-3 FATTY ACIDS
  10. NIACIN. [Concomitant]
     Active Substance: NIACIN
  11. OXYCODONE [Concomitant]
     Active Substance: OXYCODONE
     Dates: start: 20121217
  12. TIZANIDINE. [Concomitant]
     Active Substance: TIZANIDINE
     Dates: start: 20131223
  13. AMOXICILLIN. [Concomitant]
     Active Substance: AMOXICILLIN
     Dates: start: 20160122
  14. PRAVASTATIN. [Concomitant]
     Active Substance: PRAVASTATIN
  15. FLUTICASONE. [Concomitant]
     Active Substance: FLUTICASONE
  16. METOPROLOL. [Concomitant]
     Active Substance: METOPROLOL
     Route: 048
     Dates: start: 20170826
  17. ENOXAPARIN [Concomitant]
     Active Substance: ENOXAPARIN
     Route: 048
     Dates: start: 20170826
  18. CETIRIZINE [Concomitant]
     Active Substance: CETIRIZINE HYDROCHLORIDE
  19. MOXIFLOXACIN. [Concomitant]
     Active Substance: MOXIFLOXACIN
  20. DICLOFENAC [Concomitant]
     Active Substance: DICLOFENAC
  21. ASPIRIN. [Concomitant]
     Active Substance: ASPIRIN
  22. VITAMIN B12 [Concomitant]
     Active Substance: CYANOCOBALAMIN
     Route: 048
     Dates: start: 20170826
  23. PREDNISONE. [Concomitant]
     Active Substance: PREDNISONE
  24. PRILOSEC [Suspect]
     Active Substance: OMEPRAZOLE MAGNESIUM
     Indication: GASTROOESOPHAGEAL REFLUX DISEASE
     Dosage: 20.0MG UNKNOWN
     Route: 048
     Dates: start: 20150415
  25. TAMSULOSIN [Concomitant]
     Active Substance: TAMSULOSIN
     Dates: start: 20130108
  26. SILDENAFIL. [Concomitant]
     Active Substance: SILDENAFIL
     Dates: start: 20120430
  27. HYDROCORTISONE. [Concomitant]
     Active Substance: HYDROCORTISONE
     Dates: start: 20150312
  28. MIDAZOLAM. [Concomitant]
     Active Substance: MIDAZOLAM
     Route: 048
     Dates: start: 20170826
  29. PSYLLIUM [Concomitant]
     Active Substance: PLANTAGO SEED
     Route: 048
     Dates: start: 20170826
  30. GABAPENTIN. [Concomitant]
     Active Substance: GABAPENTIN
  31. OLOPATADINE. [Concomitant]
     Active Substance: OLOPATADINE
  32. BUPROPION. [Concomitant]
     Active Substance: BUPROPION
  33. ZINC SULFATE. [Concomitant]
     Active Substance: ZINC SULFATE
  34. VARDENAFIL [Concomitant]
     Active Substance: VARDENAFIL HYDROCHLORIDE
     Dates: start: 20110224
  35. SUCRALFATE. [Concomitant]
     Active Substance: SUCRALFATE
     Dates: start: 20120430
  36. TEMAZEPAM. [Concomitant]
     Active Substance: TEMAZEPAM
     Dates: start: 20121217
  37. CLOPIDOGREL [Concomitant]
     Active Substance: CLOPIDOGREL BISULFATE
     Dates: start: 20150105
  38. NITROGLYCERIN. [Concomitant]
     Active Substance: NITROGLYCERIN
     Dates: start: 20150323
  39. SODIUM BICARBONATE. [Concomitant]
     Active Substance: SODIUM BICARBONATE
  40. MAGNESIUM OXIDE. [Concomitant]
     Active Substance: MAGNESIUM OXIDE
  41. TRIAMCINOLONE [Concomitant]
     Active Substance: TRIAMCINOLONE
  42. ZOFRAN [Concomitant]
     Active Substance: ONDANSETRON HYDROCHLORIDE
  43. HYDROXYZINE [Concomitant]
     Active Substance: HYDROXYZINE HYDROCHLORIDE
     Dates: start: 20131223
  44. IBUPROFEN. [Concomitant]
     Active Substance: IBUPROFEN
     Dates: start: 20150130
  45. FENTANYL. [Concomitant]
     Active Substance: FENTANYL
  46. GEMFIBROZIL. [Concomitant]
     Active Substance: GEMFIBROZIL
  47. SODIUM CHLORIDE. [Concomitant]
     Active Substance: SODIUM CHLORIDE
  48. PRILOSEC [Suspect]
     Active Substance: OMEPRAZOLE MAGNESIUM
     Indication: GASTROOESOPHAGEAL REFLUX DISEASE
     Route: 048
     Dates: start: 199001, end: 201701
  49. PRILOSEC [Suspect]
     Active Substance: OMEPRAZOLE MAGNESIUM
     Indication: GASTROOESOPHAGEAL REFLUX DISEASE
     Dosage: 20.0MG UNKNOWN
     Route: 048
     Dates: start: 20110815
  50. PRILOSEC [Suspect]
     Active Substance: OMEPRAZOLE MAGNESIUM
     Indication: GASTROOESOPHAGEAL REFLUX DISEASE
     Dosage: 20.0MG UNKNOWN
     Route: 048
     Dates: start: 20070222
  51. ALPRAZOLAM. [Concomitant]
     Active Substance: ALPRAZOLAM
     Dates: start: 20111027
  52. TERAZOSIN [Concomitant]
     Active Substance: TERAZOSIN HYDROCHLORIDE
     Dates: start: 20121217
  53. LORAZEPAM. [Concomitant]
     Active Substance: LORAZEPAM
     Dates: start: 20150114
  54. SIMVASTATIN. [Concomitant]
     Active Substance: SIMVASTATIN
     Dates: start: 20140722
  55. DIAZEPAM. [Concomitant]
     Active Substance: DIAZEPAM
  56. VARENICLINE [Concomitant]
     Active Substance: VARENICLINE
  57. NICOTINE. [Concomitant]
     Active Substance: NICOTINE
  58. CITALOPRAM [Concomitant]
     Active Substance: CITALOPRAM HYDROBROMIDE

REACTIONS (2)
  - Chronic kidney disease [Unknown]
  - Renal failure [Unknown]

NARRATIVE: CASE EVENT DATE: 20121221
